FAERS Safety Report 8546809-4 (Version None)
Quarter: 2012Q3

REPORT INFORMATION
  Report Type: 
  Country: None (occurrence: None)
  Receive Date: 20120727
  Receipt Date: 20120208
  Transmission Date: 20120928
  Serious: No
  Sender: FDA-Public Use
  Company Number: US-ASTRAZENECA-2012SE08834

PATIENT
  Age: 35 Year
  Sex: Female

DRUGS (5)
  1. SERTRALINE HYDROCHLORIDE [Concomitant]
  2. SEROQUEL [Suspect]
     Indication: SCHIZOAFFECTIVE DISORDER
     Route: 048
     Dates: start: 20070101
  3. XANEX [Concomitant]
  4. HALOPERIDOL [Concomitant]
  5. SEROQUEL [Suspect]
     Route: 048

REACTIONS (2)
  - ILL-DEFINED DISORDER [None]
  - DRUG DOSE OMISSION [None]
